FAERS Safety Report 4783635-6 (Version None)
Quarter: 2005Q3

REPORT INFORMATION
  Report Type: 
  Country: None (occurrence: None)
  Receive Date: 20050928
  Receipt Date: 20050912
  Transmission Date: 20060218
  Serious: Yes (Life-Threatening, Hospitalization)
  Sender: FDA-Public Use
  Company Number: EWC050945600

PATIENT
  Age: 17 Year
  Sex: Female

DRUGS (2)
  1. ZYPREXA [Suspect]
     Indication: SCHIZOPHRENIA
     Dosage: 30 MG DAY
     Dates: start: 20050110, end: 20050822
  2. ABILIFY [Concomitant]

REACTIONS (9)
  - ACCIDENTAL OVERDOSE [None]
  - AREFLEXIA [None]
  - COMA [None]
  - CONFUSIONAL STATE [None]
  - DISORIENTATION [None]
  - HYPERSOMNIA [None]
  - INCORRECT DRUG ADMINISTRATION DURATION [None]
  - INSOMNIA [None]
  - UPPER RESPIRATORY TRACT INFECTION [None]
